FAERS Safety Report 6094910-X (Version None)
Quarter: 2009Q1

REPORT INFORMATION
  Report Type: 
  Country: None (occurrence: None)
  Receive Date: 20090227
  Receipt Date: 20090217
  Transmission Date: 20090719
  Serious: Yes (Hospitalization, Other)
  Sender: FDA-Public Use
  Company Number: GB-JNJFOC-20070303221

PATIENT
  Sex: Male
  Weight: 34 kg

DRUGS (12)
  1. REMICADE [Suspect]
     Indication: CROHN'S DISEASE
     Dosage: 5 MG/KG
     Route: 042
  2. SOLU-CORTEF [Concomitant]
     Indication: DRUG USE FOR UNKNOWN INDICATION
  3. IMURAN [Concomitant]
     Indication: CROHN'S DISEASE
     Route: 048
  4. OMEPRAZOLE [Concomitant]
     Indication: DYSPEPSIA
     Route: 048
  5. OMEPRAZOLE [Concomitant]
     Indication: CROHN'S DISEASE
     Route: 048
  6. HYDROCORTISONE [Concomitant]
     Indication: CROHN'S DISEASE
     Route: 042
  7. TPN [Concomitant]
     Route: 042
  8. POTASSIUM CHLORIDE [Concomitant]
     Route: 042
  9. SULPHATE [Concomitant]
  10. MEBEVERINE [Concomitant]
     Indication: CROHN'S DISEASE
  11. PREDNISOLONE [Concomitant]
     Indication: CROHN'S DISEASE
     Route: 048
  12. PYRIDOXINE HYDROCHLORIDE [Concomitant]
     Route: 042

REACTIONS (2)
  - CROHN'S DISEASE [None]
  - REVERSIBLE POSTERIOR LEUKOENCEPHALOPATHY SYNDROME [None]
